FAERS Safety Report 9224846 (Version 1)
Quarter: 2013Q2

REPORT INFORMATION
  Report Type: Spontaneous
  Country: HR (occurrence: HR)
  Receive Date: 20130411
  Receipt Date: 20130411
  Transmission Date: 20140414
  Serious: Yes (Other)
  Sender: FDA-Public Use
  Company Number: HR-SANOFI-AVENTIS-2013SA035103

PATIENT
  Age: 55 Year
  Sex: Male
  Weight: 85 kg

DRUGS (8)
  1. TAXOTERE [Suspect]
     Indication: PROSTATE CANCER
     Route: 042
     Dates: start: 20110907, end: 20121218
  2. ZOMETA [Interacting]
     Indication: METASTASES TO BONE
     Dosage: FORM: INFUSION AMPOULES, VIALS/BOTTLES
     Route: 042
     Dates: start: 20110907, end: 20130108
  3. DECORTIN [Interacting]
     Indication: PROSTATE CANCER
     Dosage: 5 MG IN THE MORNING AND 5 MG IN THE EVENING EVERY DAY
     Route: 048
     Dates: start: 20110907
  4. SOLU-MEDROL [Suspect]
     Indication: PROSTATE CANCER
     Dosage: FORM: VIALS
     Route: 042
     Dates: start: 20110907
  5. PLIVIT D3 [Concomitant]
     Indication: PROSTATE CANCER
     Route: 048
     Dates: start: 20110907
  6. REGLAN [Concomitant]
     Indication: NAUSEA
     Dates: start: 201109
  7. PEPTORAN [Concomitant]
     Indication: NAUSEA
     Dates: start: 201109
  8. CALCIUM CARBONATE [Concomitant]
     Indication: PROSTATE CANCER
     Route: 048
     Dates: start: 20110907

REACTIONS (4)
  - Osteonecrosis of jaw [Not Recovered/Not Resolved]
  - Drug interaction [Unknown]
  - Exposed bone in jaw [Not Recovered/Not Resolved]
  - Oral disorder [Not Recovered/Not Resolved]
